FAERS Safety Report 8816472 (Version 1)
Quarter: 2012Q4

REPORT INFORMATION
  Report Type: Spontaneous
  Country: GB (occurrence: None)
  Receive Date: 20120927
  Receipt Date: 20120927
  Transmission Date: 20130627
  Serious: Yes (Other)
  Sender: FDA-Public Use
  Company Number: AUR-APL-2012-04095

PATIENT
  Age: 13 Year
  Sex: Male
  Weight: 57.3 kg

DRUGS (4)
  1. OLANZAPINE [Suspect]
     Indication: PSYCHOSIS
     Route: 048
     Dates: start: 20120415
  2. DIAZEPAM (DIAZEPAM) [Concomitant]
  3. HYOSCINE HYDROBROMIDE (HYOSCINE HYDROBROMIDE) [Concomitant]
  4. LORAZEPAM (LORAZEPAM) [Concomitant]

REACTIONS (3)
  - Blood alkaline phosphatase increased [None]
  - Liver injury [None]
  - Drug level increased [None]
